FAERS Safety Report 7133337-6 (Version None)
Quarter: 2010Q4

REPORT INFORMATION
  Report Type: 
  Country: None (occurrence: None)
  Receive Date: 20101117
  Receipt Date: 20101104
  Transmission Date: 20110411
  Serious: Yes (Hospitalization, Other)
  Sender: FDA-Public Use
  Company Number: 021275

PATIENT
  Sex: Male

DRUGS (3)
  1. KEPPRA [Suspect]
     Indication: CONVULSION
     Dosage: (1000 MG BID), (1000 MG IN THE AM AND 1500 MG IN THE PM)
     Dates: start: 20100101, end: 20100901
  2. KEPPRA [Suspect]
     Indication: CONVULSION
     Dosage: (1000 MG BID), (1000 MG IN THE AM AND 1500 MG IN THE PM)
     Dates: start: 20100101
  3. TEGRETOL [Concomitant]

REACTIONS (5)
  - ECONOMIC PROBLEM [None]
  - FALL [None]
  - GRAND MAL CONVULSION [None]
  - LACERATION [None]
  - TREATMENT NONCOMPLIANCE [None]
